FAERS Safety Report 8340871-X (Version None)
Quarter: 2012Q2

REPORT INFORMATION
  Report Type: 
  Country: None (occurrence: None)
  Receive Date: 20120503
  Receipt Date: 20120426
  Transmission Date: 20120825
  Serious: Yes (Life-Threatening)
  Sender: FDA-Public Use
  Company Number: GER/UKI/12/0024094

PATIENT
  Age: 15 Year
  Sex: Male

DRUGS (1)
  1. RISPERIDONE [Suspect]
     Indication: PRODUCT USED FOR UNKNOWN INDICATION
     Dosage: 0.5 MG, 1 IN 1 D, ORAL
     Route: 048
     Dates: start: 20120322, end: 20120405

REACTIONS (2)
  - THROMBOCYTOPENIA [None]
  - PLATELET COUNT DECREASED [None]
